FAERS Safety Report 5507208-2 (Version None)
Quarter: 2007Q4

REPORT INFORMATION
  Report Type: 
  Country: None (occurrence: None)
  Receive Date: 20071102
  Receipt Date: 20071022
  Transmission Date: 20080405
  Serious: Yes (Death, Hospitalization)
  Sender: FDA-Public Use
  Company Number: CLOF-10718

PATIENT
  Age: 70 Year
  Sex: Male

DRUGS (9)
  1. CLOFARABINE. MFR: GENZYME [Suspect]
     Indication: ACUTE MYELOID LEUKAEMIA
     Dosage: 30 MG/M2 QD IV
     Route: 042
     Dates: start: 20071005, end: 20071009
  2. TYLENOL. MFR: MCNEIL LABORATORIES, INCORPORATED [Concomitant]
  3. BENADRYL. MFR: PARKE, DAVIS AND COMPANY [Concomitant]
  4. ALLOPURINOL [Concomitant]
  5. CIPROFLOXACIN [Concomitant]
  6. HYDRALAZINE HCL [Concomitant]
  7. HYDREA. MFR: SQUIBB E.R. + SONS, INCORPORATED [Concomitant]
  8. LIPITOR. MFR: PARKE, DAVIS AND COMPANY [Concomitant]
  9. ASPIRIN [Concomitant]

REACTIONS (23)
  - ABDOMINAL DISTENSION [None]
  - ASPERGILLOSIS [None]
  - BLISTER [None]
  - CATHETER RELATED INFECTION [None]
  - DELIRIUM [None]
  - EYELID PTOSIS [None]
  - FEBRILE NEUTROPENIA [None]
  - GASTROINTESTINAL SOUNDS ABNORMAL [None]
  - HAEMATOCRIT DECREASED [None]
  - HAEMOGLOBIN DECREASED [None]
  - HYPERDYNAMIC PRECORDIUM [None]
  - MUCOSAL INFLAMMATION [None]
  - NAUSEA [None]
  - NECROSIS ISCHAEMIC [None]
  - OEDEMA PERIPHERAL [None]
  - PLEURAL EFFUSION [None]
  - PNEUMONIA [None]
  - RENAL FAILURE ACUTE [None]
  - SINUSITIS FUNGAL [None]
  - STAPHYLOCOCCAL INFECTION [None]
  - TACHYPNOEA [None]
  - VOMITING [None]
  - WHITE BLOOD CELL COUNT DECREASED [None]
